FAERS Safety Report 4979669-9 (Version None)
Quarter: 2006Q2

REPORT INFORMATION
  Report Type: 
  Country: None (occurrence: None)
  Receive Date: 20060418
  Receipt Date: 20060328
  Transmission Date: 20061013
  Serious: Yes (Other)
  Sender: FDA-Public Use
  Company Number: ES200603006328

PATIENT
  Sex: Female

DRUGS (3)
  1. CYMBALTA [Suspect]
     Indication: DEPRESSION
     Dosage: 60 MG, DAILY (1/D) ORAL
     Route: 048
     Dates: start: 20060315, end: 20060316
  2. PROZAC (FLUOXETINE HYDROCHLORIDE UNKNOWN FORMULATION) 20 MG [Suspect]
     Indication: DEPRESSION
     Dosage: ORAL
     Route: 048
     Dates: start: 20040101
  3. LORAZEPAM [Concomitant]

REACTIONS (6)
  - COLD SWEAT [None]
  - CONVULSION [None]
  - DRUG INTERACTION [None]
  - FALL [None]
  - JOINT DISLOCATION [None]
  - LOSS OF CONSCIOUSNESS [None]
